FAERS Safety Report 23209794 (Version 3)
Quarter: 2024Q1

REPORT INFORMATION
  Report Type: Spontaneous
  Country: JP (occurrence: JP)
  Receive Date: 20231121
  Receipt Date: 20240126
  Transmission Date: 20240409
  Serious: Yes (Death)
  Sender: FDA-Public Use
  Company Number: JP-KISSEI-TV20230664_P_1

PATIENT
  Age: 79 Year
  Sex: Male
  Weight: 59.2 kg

DRUGS (13)
  1. TAVNEOS [Suspect]
     Active Substance: AVACOPAN
     Indication: Microscopic polyangiitis
     Dosage: 30 MILLIGRAM, Q12H
     Route: 048
     Dates: start: 20230901, end: 20231016
  2. VELPHORO [Suspect]
     Active Substance: SUCROFERRIC OXYHYDROXIDE
     Indication: End stage renal disease
     Dosage: 500 MILLIGRAM, Q8H
     Route: 048
     Dates: start: 20190419
  3. DARBEPOETIN ALFA [Concomitant]
     Active Substance: DARBEPOETIN ALFA
     Indication: End stage renal disease
     Dosage: 30 MICROGRAM, QWK
     Route: 040
     Dates: start: 20181211
  4. PREDONINE [Concomitant]
     Active Substance: PREDNISOLONE
     Indication: Microscopic polyangiitis
     Dosage: 15 MILLIGRAM, QD
     Route: 048
     Dates: start: 20181211
  5. LINAGLIPTIN [Concomitant]
     Active Substance: LINAGLIPTIN
     Indication: Diabetes mellitus
     Dosage: 5 MILLIGRAM, QD
     Route: 048
     Dates: start: 20230224
  6. LASIX [Concomitant]
     Active Substance: FUROSEMIDE
     Indication: End stage renal disease
     Dosage: 20 MILLIGRAM, QD
     Route: 048
     Dates: start: 20181211
  7. CALTAN [Concomitant]
     Active Substance: CALCIUM CARBONATE
     Indication: End stage renal disease
     Dosage: 500 MILLIGRAM, Q8H
     Dates: start: 20181211
  8. Pursennid [Concomitant]
     Indication: Constipation
     Dosage: 36 MILLIGRAM, QD
     Route: 048
     Dates: start: 20190726
  9. ZOLPIDEM TARTRATE [Concomitant]
     Active Substance: ZOLPIDEM TARTRATE
     Indication: Insomnia
     Dosage: 10 MILLIGRAM, QD
     Route: 048
     Dates: start: 20210402
  10. TRAMCET [Concomitant]
     Active Substance: ACETAMINOPHEN\TRAMADOL
     Indication: Compression fracture
     Dosage: 1 DOSAGE FORM, QD
     Route: 048
     Dates: start: 20220311
  11. Upasita [Concomitant]
     Indication: End stage renal disease
     Dosage: FREQUENCY: 25 MICROGRAM EVERY 0.33 WEEKS
     Dates: start: 20230424
  12. L carnitin [Concomitant]
     Indication: End stage renal disease
     Dosage: FREQUENCY: 0.33 WEEKS
     Dates: start: 20210922
  13. ROCALTROL [Concomitant]
     Active Substance: CALCITRIOL
     Indication: End stage renal disease
     Dosage: FREQUENCY: 0.5 WEEK
     Dates: start: 20221125

REACTIONS (3)
  - Acute myocardial infarction [Fatal]
  - Chest pain [Fatal]
  - Dyspnoea [Fatal]

NARRATIVE: CASE EVENT DATE: 20230101
